FAERS Safety Report 8847267 (Version 1)
Quarter: 2012Q4

REPORT INFORMATION
  Report Type: 
  Country: US (occurrence: US)
  Receive Date: 20121018
  Receipt Date: 20121018
  Transmission Date: 20130627
  Serious: No
  Sender: FDA-Public Use
  Company Number: US-009507513-1210USA008471

PATIENT
  Age: 2 Year
  Sex: Male

DRUGS (1)
  1. COPPERTONE WATER BABIES LOTION SPF-70+ [Suspect]
     Indication: PRODUCT USED FOR UNKNOWN INDICATION
     Dosage: UNK, Unknown
     Route: 061

REACTIONS (2)
  - Rash macular [Unknown]
  - Urticaria [Unknown]
